FAERS Safety Report 9760163 (Version 1)
Quarter: 2013Q4

REPORT INFORMATION
  Report Type: Spontaneous
  Country: TR (occurrence: None)
  Receive Date: 20131212
  Receipt Date: 20131212
  Transmission Date: 20140711
  Serious: Yes (Life-Threatening, Hospitalization)
  Sender: FDA-Public Use
  Company Number: TR-013918

PATIENT
  Age: 8 Year
  Sex: Female

DRUGS (1)
  1. GONADORELIN ACETATE [Suspect]
     Indication: DIAGNOSTIC PROCEDURE
     Dosage: (NOT OTHERWISE SPECIFIED)
     Route: 042

REACTIONS (1)
  - Anaphylactic shock [None]
